FAERS Safety Report 25515677 (Version 2)
Quarter: 2025Q3

REPORT INFORMATION
  Report Type: Spontaneous
  Country: US (occurrence: US)
  Receive Date: 20250704
  Receipt Date: 20250927
  Transmission Date: 20251020
  Serious: No
  Sender: SANOFI AVENTIS
  Company Number: US-SA-2025SA188654

PATIENT
  Sex: Female
  Weight: 55.41 kg

DRUGS (2)
  1. DUPIXENT [Suspect]
     Active Substance: DUPILUMAB
     Indication: Dermatitis atopic
     Dosage: 300 MG, QOW
     Route: 058
  2. COCONUT OIL [Concomitant]
     Active Substance: COCONUT OIL

REACTIONS (7)
  - Joint swelling [Unknown]
  - Lymphadenopathy [Unknown]
  - Paraesthesia [Unknown]
  - Arthralgia [Unknown]
  - Hypersensitivity [Unknown]
  - Dermatitis allergic [Unknown]
  - Skin infection [Unknown]
